FAERS Safety Report 7678579-6 (Version None)
Quarter: 2011Q3

REPORT INFORMATION
  Report Type: 
  Country: None (occurrence: None)
  Receive Date: 20110811
  Receipt Date: 20110803
  Transmission Date: 20111222
  Serious: Yes (Other)
  Sender: FDA-Public Use
  Company Number: PHHY2011SG70911

PATIENT
  Sex: Female

DRUGS (1)
  1. ENOXAPARIN SODIUM [Suspect]
     Indication: DEEP VEIN THROMBOSIS
     Dosage: 40 MG, BID
     Route: 058

REACTIONS (10)
  - PERIORBITAL HAEMATOMA [None]
  - EXOPHTHALMOS [None]
  - THROMBOCYTOPENIA [None]
  - EYE MOVEMENT DISORDER [None]
  - KERATOPATHY [None]
  - LACRIMAL GLAND ENLARGEMENT [None]
  - RETINAL HAEMORRHAGE [None]
  - CONJUNCTIVAL OEDEMA [None]
  - CORNEAL LESION [None]
  - ACTIVATED PARTIAL THROMBOPLASTIN TIME PROLONGED [None]
